FAERS Safety Report 14835436 (Version 1)
Quarter: 2018Q2

REPORT INFORMATION
  Report Type: Spontaneous
  Country: BR (occurrence: BR)
  Receive Date: 20180502
  Receipt Date: 20180502
  Transmission Date: 20180711
  Serious: Yes (Other)
  Sender: FDA-Public Use
  Company Number: BR-TEVA-2018-BR-887437

PATIENT
  Age: 43 Year
  Sex: Female

DRUGS (1)
  1. METHOTREXATE. [Suspect]
     Active Substance: METHOTREXATE
     Indication: RHEUMATOID ARTHRITIS
     Route: 065

REACTIONS (6)
  - Stomatitis [Recovering/Resolving]
  - Skin necrosis [Recovering/Resolving]
  - Pancytopenia [Recovering/Resolving]
  - Accidental overdose [Recovering/Resolving]
  - Hepatic function abnormal [Recovering/Resolving]
  - Papule [Recovering/Resolving]
